FAERS Safety Report 10662018 (Version 1)
Quarter: 2014Q4

REPORT INFORMATION
  Report Type: Report from Study
  Country: AR (occurrence: AR)
  Receive Date: 20141218
  Receipt Date: 20141218
  Transmission Date: 20150529
  Serious: Yes (Death)
  Sender: FDA-Public Use
  Company Number: PHHY2014AR165533

PATIENT
  Sex: Female

DRUGS (1)
  1. DIOVAN D [Suspect]
     Active Substance: HYDROCHLOROTHIAZIDE\VALSARTAN
     Indication: PRODUCT USED FOR UNKNOWN INDICATION
     Dosage: 80 MG (AS REPORTED), UNK
     Route: 048

REACTIONS (1)
  - Death [Fatal]
